FAERS Safety Report 5269732-X (Version None)
Quarter: 2007Q1

REPORT INFORMATION
  Report Type: 
  Country: None (occurrence: None)
  Receive Date: 20070320
  Receipt Date: 20070308
  Transmission Date: 20070707
  Serious: Yes (Death, Hospitalization)
  Sender: FDA-Public Use
  Company Number: SE-ROCHE-483796

PATIENT
  Age: 64 Year
  Sex: Female

DRUGS (10)
  1. CYMEVENE [Suspect]
     Indication: CYTOMEGALOVIRUS GASTROINTESTINAL INFECTION
     Dosage: FORM REPORTED AS POWDER FOR SOLUTION FOR INFUSION. DOSAGE REGIMEN UKNOWN.
     Route: 042
     Dates: start: 20020915, end: 20021007
  2. CYMEVENE [Suspect]
     Route: 042
     Dates: start: 20021013, end: 20021013
  3. URSO FALK [Concomitant]
  4. ACTRAPID [Concomitant]
  5. SANDIMMUNE [Concomitant]
     Indication: IMMUNOSUPPRESSION
  6. FRAGMIN [Concomitant]
  7. MIACALCIN [Concomitant]
  8. 3 CONCOMITANT UNSPECIFIED DRUGS [Concomitant]
  9. ANDAPSIN [Concomitant]
  10. COMBIVENT [Concomitant]
     Dosage: REPORTED AS COMBIVENT NEBULISER SOLUTION (BOEHRINGER INGELHEIM INTERNATIONAL GMBH).

REACTIONS (5)
  - CHOLESTASIS [None]
  - CIRCULATORY COLLAPSE [None]
  - DRUG LEVEL INCREASED [None]
  - ENCEPHALITIS VIRAL [None]
  - PERITONITIS [None]
